FAERS Safety Report 18478570 (Version 1)
Quarter: 2020Q4

REPORT INFORMATION
  Report Type: Report from Study
  Country: CN (occurrence: CN)
  Receive Date: 20201109
  Receipt Date: 20201109
  Transmission Date: 20210114
  Serious: Yes (Hospitalization)
  Sender: FDA-Public Use
  Company Number: CN-BRISTOL-MYERS SQUIBB COMPANY-BMS-2020-089731

PATIENT
  Age: 53 Year
  Sex: Female

DRUGS (18)
  1. DOCETAXEL. [Suspect]
     Active Substance: DOCETAXEL
     Dosage: 36 MILLIGRAM
     Route: 065
     Dates: start: 20200423
  2. CISPLATIN. [Suspect]
     Active Substance: CISPLATIN
     Indication: NON-SMALL CELL LUNG CANCER
     Dosage: 25 MILLIGRAM/SQ. METER
     Route: 065
     Dates: start: 20200311, end: 20200401
  3. CISPLATIN. [Suspect]
     Active Substance: CISPLATIN
     Dosage: 36 MILLIGRAM
     Route: 065
     Dates: start: 20200423
  4. CISPLATIN. [Suspect]
     Active Substance: CISPLATIN
     Dosage: 36 MILLIGRAM
     Route: 065
     Dates: start: 20200623
  5. MEDROL [Concomitant]
     Active Substance: METHYLPREDNISOLONE
     Dosage: 16 MILLIGRAM, QD
     Route: 048
     Dates: start: 20200922
  6. MEDROL [Concomitant]
     Active Substance: METHYLPREDNISOLONE
     Dosage: 24 MILLIGRAM, QD
     Route: 048
     Dates: start: 20201016
  7. METHYLPREDNISOLONE SODIUM SUCCINATE. [Concomitant]
     Active Substance: METHYLPREDNISOLONE SODIUM SUCCINATE
     Indication: PRODUCT USED FOR UNKNOWN INDICATION
     Dosage: 80 MILLIGRAM, QD
     Route: 042
     Dates: start: 20200821, end: 20200823
  8. AMBROXOL HYDROCHLORIDE [Concomitant]
     Active Substance: AMBROXOL HYDROCHLORIDE
     Indication: PRODUCT USED FOR UNKNOWN INDICATION
     Dosage: 300 MILLIGRAM, QD
     Route: 042
     Dates: start: 20200821, end: 20200823
  9. CISPLATIN. [Suspect]
     Active Substance: CISPLATIN
     Dosage: 36 MILLIGRAM
     Route: 065
     Dates: start: 20200616
  10. METHYLPREDNISOLONE SODIUM SUCCINATE. [Concomitant]
     Active Substance: METHYLPREDNISOLONE SODIUM SUCCINATE
     Dosage: 80 MILLIGRAM, QD
     Route: 042
     Dates: start: 20200826, end: 20200926
  11. NIVOLUMAB [Suspect]
     Active Substance: NIVOLUMAB
     Indication: NON-SMALL CELL LUNG CANCER
     Dosage: 360 MILLIGRAM
     Route: 042
     Dates: start: 20200311, end: 20200401
  12. DOCETAXEL. [Suspect]
     Active Substance: DOCETAXEL
     Dosage: 36 MILLIGRAM
     Route: 065
     Dates: start: 20200430
  13. DOCETAXEL. [Suspect]
     Active Substance: DOCETAXEL
     Dosage: 36 MILLIGRAM
     Route: 065
     Dates: start: 20200623
  14. DOCETAXEL. [Suspect]
     Active Substance: DOCETAXEL
     Indication: NON-SMALL CELL LUNG CANCER
     Dosage: 75 MILLIGRAM/SQ. METER D1-3
     Route: 065
     Dates: start: 20200311, end: 20200401
  15. DOCETAXEL. [Suspect]
     Active Substance: DOCETAXEL
     Dosage: 36 MILLIGRAM
     Route: 065
     Dates: start: 20200616
  16. ILAPRAZOLE [Concomitant]
     Active Substance: ILAPRAZOLE
     Indication: PRODUCT USED FOR UNKNOWN INDICATION
     Dosage: UNK
     Route: 065
     Dates: start: 20200826, end: 20200926
  17. CISPLATIN. [Suspect]
     Active Substance: CISPLATIN
     Dosage: 36 MILLIGRAM
     Route: 065
     Dates: start: 20200430
  18. MEDROL [Concomitant]
     Active Substance: METHYLPREDNISOLONE
     Indication: RADIATION PNEUMONITIS
     Dosage: 40 MILLIGRAM
     Route: 065
     Dates: start: 20200826

REACTIONS (1)
  - Radiation pneumonitis [Not Recovered/Not Resolved]

NARRATIVE: CASE EVENT DATE: 20201023
